FAERS Safety Report 5786253-6 (Version None)
Quarter: 2008Q2

REPORT INFORMATION
  Report Type: 
  Country: None (occurrence: None)
  Receive Date: 20080624
  Receipt Date: 20080613
  Transmission Date: 20081010
  Serious: Yes (Other)
  Sender: FDA-Public Use
  Company Number: US-ELI_LILLY_AND_COMPANY-US200806003503

PATIENT
  Age: 46 Year
  Sex: Female

DRUGS (3)
  1. CYMBALTA [Suspect]
     Dosage: 90 MG, DAILY (1/D)
     Dates: start: 20050101, end: 20080101
  2. CYMBALTA [Suspect]
     Dosage: 1 D/F, UNK
     Dates: start: 20080101
  3. ESTRADIOL [Concomitant]
     Dosage: UNK, UNK
     Route: 061
     Dates: start: 20080501, end: 20080101

REACTIONS (2)
  - ASPARTATE AMINOTRANSFERASE INCREASED [None]
  - PHARMACEUTICAL PRODUCT COMPLAINT [None]
